FAERS Safety Report 9034702 (Version 1)
Quarter: 2013Q1

REPORT INFORMATION
  Report Type: Spontaneous
  Country: US (occurrence: None)
  Receive Date: 20130111
  Receipt Date: 20130111
  Transmission Date: 20140127
  Serious: No
  Sender: FDA-Public Use
  Company Number: TPA2012A06472

PATIENT
  Age: 64 Year
  Sex: Male
  Weight: 79.83 kg

DRUGS (3)
  1. ACTOS (PIOGLITAZONE HYDROCHLORIDE) [Suspect]
     Indication: TYPE 2 DIABETES MELLITUS
     Dates: start: 20090105, end: 20090306
  2. ACTOPLUS MET [Suspect]
     Indication: TYPE 2 DIABETES MELLITUS
     Dates: start: 20071012, end: 20090105
  3. METFORMIN (METFORMIN) [Concomitant]

REACTIONS (1)
  - Bladder cancer [None]
